FAERS Safety Report 4358687-8 (Version None)
Quarter: 2004Q2

REPORT INFORMATION
  Report Type: 
  Country: None (occurrence: None)
  Receive Date: 20040514
  Receipt Date: 20040514
  Transmission Date: 20050107
  Serious: Yes (Hospitalization)
  Sender: FDA-Public Use
  Company Number: None

PATIENT

DRUGS (2)
  1. LORAZEPAM [Suspect]
     Indication: ANXIETY
     Dosage: 0.5MG X1 INTRAVENOUS
     Route: 042
  2. MORPHINE [Suspect]
     Dosage: 2MG X 1 INTRAVENOUS
     Route: 042

REACTIONS (2)
  - HYPOVENTILATION [None]
  - LETHARGY [None]
